FAERS Safety Report 11716937 (Version 1)
Quarter: 2015Q4

REPORT INFORMATION
  Report Type: Spontaneous
  Country: US (occurrence: None)
  Receive Date: 20151109
  Receipt Date: 20151109
  Transmission Date: 20160304
  Serious: Yes (Death, Hospitalization, Other)
  Sender: FDA-Public Use
  Company Number: US-MDT-ADR-2015-02102

PATIENT
  Age: 42 Year
  Sex: Female

DRUGS (2)
  1. LIORESAL [Suspect]
     Active Substance: BACLOFEN
     Indication: MUSCLE SPASTICITY
     Dosage: 249.77 MCG/DAY
  2. MORPHINE (INTRATHECAL) 40.0MG/ML [Suspect]
     Active Substance: MORPHINE
     Indication: PAIN
     Dosage: 24.368MG/DAY

REACTIONS (3)
  - Pneumonia [None]
  - Organ failure [None]
  - Infection [None]
